FAERS Safety Report 5563970-4 (Version None)
Quarter: 2007Q4

REPORT INFORMATION
  Report Type: 
  Country: None (occurrence: None)
  Receive Date: 20071217
  Receipt Date: 20071210
  Transmission Date: 20080405
  Serious: Yes (Hospitalization)
  Sender: FDA-Public Use
  Company Number: US-ELI_LILLY_AND_COMPANY-US200712001966

PATIENT
  Age: 28 Year
  Sex: Male

DRUGS (1)
  1. HUMALOG [Suspect]
     Route: 058

REACTIONS (1)
  - ROAD TRAFFIC ACCIDENT [None]
